FAERS Safety Report 13843825 (Version 4)
Quarter: 2018Q2

REPORT INFORMATION
  Report Type: Report from Study
  Country: BR (occurrence: BR)
  Receive Date: 20170808
  Receipt Date: 20180412
  Transmission Date: 20180711
  Serious: Yes (Death, Hospitalization, Disabling)
  Sender: FDA-Public Use
  Company Number: PHHY2016BR118527

PATIENT
  Age: 59 Year
  Sex: Male
  Weight: 70 kg

DRUGS (20)
  1. FORASEQ [Suspect]
     Active Substance: BUDESONIDE\FORMOTEROL FUMARATE
     Indication: LUNG DISORDER
     Dosage: 2 DF, UNK
     Route: 055
     Dates: start: 2000
  2. TEOLONG [Concomitant]
     Dosage: BID (THE MORNING AND AT NIGHT)
     Route: 048
  3. MIFLONIDE [Concomitant]
     Active Substance: BUDESONIDE
     Dosage: UNK, BID (THREE YEARS AGO)
     Route: 055
  4. XOLAIR [Suspect]
     Active Substance: OMALIZUMAB
     Indication: ASTHMA
     Dosage: (EVERY SECOND SECOND THE MONT)150 MG, QMO
     Route: 058
     Dates: start: 201506
  5. OMEPRAZOL [Concomitant]
     Active Substance: OMEPRAZOLE
     Indication: PRODUCT USED FOR UNKNOWN INDICATION
     Dosage: 40 MG, QD (UNDER FASTING)
     Route: 048
  6. SPIRIVA [Concomitant]
     Active Substance: TIOTROPIUM BROMIDE MONOHYDRATE
     Dosage: BID (THE MORNING AND AT NIGHT)
     Route: 055
  7. XOLAIR [Suspect]
     Active Substance: OMALIZUMAB
     Indication: PROPHYLAXIS
     Dosage: 150 MG, QMO
     Route: 058
     Dates: start: 20151117
  8. CORTICORTEN [Concomitant]
     Active Substance: PREDNISONE
     Indication: PRODUCT USED FOR UNKNOWN INDICATION
     Dosage: 5 MG, BID
     Route: 048
  9. SPIRIVA [Concomitant]
     Active Substance: TIOTROPIUM BROMIDE MONOHYDRATE
     Indication: LUNG DISORDER
     Dosage: 2 DF, QD
     Route: 055
  10. TEOLONG [Concomitant]
     Indication: LUNG DISORDER
     Dosage: 2 DF, QD
     Route: 055
  11. ENSURE [Concomitant]
     Active Substance: AMINO ACIDS\DEXTROSE\ELECTROLYTES NOS\SOYBEAN OIL\VITAMINS
     Indication: PRODUCT USED FOR UNKNOWN INDICATION
     Dosage: BID
     Route: 065
  12. FRONTAL [Concomitant]
     Active Substance: ALPRAZOLAM
     Indication: RESTLESSNESS
  13. FORASEQ [Suspect]
     Active Substance: BUDESONIDE\FORMOTEROL FUMARATE
     Dosage: BID (THE MORNING AND AT NIGHT) (TABLET FOR INHALATION)
     Route: 055
  14. FORASEQ [Suspect]
     Active Substance: BUDESONIDE\FORMOTEROL FUMARATE
     Dosage: UNK, QD (THREE YEARS AGO)
     Route: 055
  15. PULMICORT TURBUHALER [Concomitant]
     Active Substance: BUDESONIDE
     Indication: PRODUCT USED FOR UNKNOWN INDICATION
     Dosage: 0.5 MG, QD
     Route: 055
  16. ATROVENT [Concomitant]
     Active Substance: IPRATROPIUM BROMIDE
     Indication: RESPIRATORY DISORDER
     Dosage: 20 DRP, UNK
     Route: 055
  17. LOSARTAN POTASSICO [Concomitant]
     Indication: HYPERTENSION
     Dosage: 50 MG, BID
     Route: 048
  18. FRONTAL [Concomitant]
     Active Substance: ALPRAZOLAM
     Indication: NERVOUS SYSTEM DISORDER
     Dosage: UNK, QD (THREE MONTHS AGO)
     Route: 048
  19. ACETILCISTEINA [Concomitant]
     Active Substance: ACETYLCYSTEINE
     Indication: PRODUCT USED FOR UNKNOWN INDICATION
     Dosage: 600 MG, UNK
     Route: 048
  20. MIFLONIDE [Concomitant]
     Active Substance: BUDESONIDE
     Indication: LUNG DISORDER
     Dosage: BID (IN THE MORNING AND AT NIGHT) (TABLET FOR INHALATION)
     Route: 055

REACTIONS (24)
  - Pneumonia bacterial [Recovering/Resolving]
  - Malaise [Unknown]
  - Asthenia [Unknown]
  - Death [Fatal]
  - Memory impairment [Recovering/Resolving]
  - Cough [Unknown]
  - Dyspnoea [Recovering/Resolving]
  - Gait inability [Recovering/Resolving]
  - Fatigue [Not Recovered/Not Resolved]
  - Drooling [Unknown]
  - Product use in unapproved indication [Unknown]
  - Asthma [Unknown]
  - Sputum discoloured [Unknown]
  - Lung disorder [Unknown]
  - Urinary tract infection [Recovering/Resolving]
  - Influenza [Recovering/Resolving]
  - Productive cough [Not Recovered/Not Resolved]
  - Weight decreased [Recovering/Resolving]
  - Respiratory disorder [Recovering/Resolving]
  - Urinary tract pain [Unknown]
  - Pyrexia [Unknown]
  - Skin discolouration [Unknown]
  - Sensitivity to weather change [Unknown]
  - Catarrh [Unknown]

NARRATIVE: CASE EVENT DATE: 20160714
